FAERS Safety Report 18613179 (Version 1)
Quarter: 2020Q4

REPORT INFORMATION
  Report Type: Spontaneous
  Country: US (occurrence: US)
  Receive Date: 20201214
  Receipt Date: 20201214
  Transmission Date: 20210114
  Serious: No
  Sender: FDA-Public Use
  Company Number: US-ABBVIE-19K-163-3182355-00

PATIENT
  Sex: Female

DRUGS (1)
  1. IMBRUVICA [Suspect]
     Active Substance: IBRUTINIB
     Indication: PRODUCT USED FOR UNKNOWN INDICATION
     Route: 048

REACTIONS (10)
  - Blood potassium increased [Unknown]
  - Blood lactate dehydrogenase increased [Unknown]
  - Eosinophil count increased [Unknown]
  - Blood glucose increased [Unknown]
  - Alanine aminotransferase increased [Unknown]
  - Carbon dioxide decreased [Unknown]
  - Blood chloride increased [Unknown]
  - Blood alkaline phosphatase increased [Unknown]
  - Neutrophil count increased [Unknown]
  - Monocyte count increased [Unknown]
